FAERS Safety Report 24851011 (Version 4)
Quarter: 2025Q1

REPORT INFORMATION
  Report Type: Spontaneous
  Country: PT (occurrence: PT)
  Receive Date: 20250116
  Receipt Date: 20250329
  Transmission Date: 20250408
  Serious: Yes (Hospitalization)
  Sender: TEVA
  Company Number: None

PATIENT
  Age: 52 Year
  Sex: Male
  Weight: 86 kg

DRUGS (5)
  1. CIPROFLOXACIN [Suspect]
     Active Substance: CIPROFLOXACIN
     Indication: Cholecystectomy
     Dosage: 500MG EVERY 12H FOR 8 DAYS. THE PATIENT WAS HOSPITALIZED WHEN HE STARTED CIPROFLOXACIN IV (400MG ...
     Route: 048
     Dates: start: 20241118, end: 20241123
  2. ACETAMINOPHEN [Concomitant]
     Active Substance: ACETAMINOPHEN
     Indication: Product used for unknown indication
     Dosage: 1000MG IV 6/6H
     Route: 042
  3. Nolotil [Concomitant]
     Indication: Product used for unknown indication
     Dosage: 2000MG IV 12/12H
     Route: 042
  4. CIPROFLOXACIN LACTATE [Suspect]
     Active Substance: CIPROFLOXACIN LACTATE
     Indication: Cholecystectomy
     Dosage: 400MG 12/12H IV, FOR 4 DAYS.THE PATIENT WAS HOSPITALIZED WHEN IV CIPROFLOXACIN (400MG EVERY 12H) ...
     Route: 042
     Dates: start: 20241114, end: 20241118
  5. METOCLOPRAMIDE HYDROCHLORIDE [Concomitant]
     Active Substance: METOCLOPRAMIDE HYDROCHLORIDE
     Indication: Product used for unknown indication
     Dosage: 10MG IV 8/8H
     Route: 042

REACTIONS (3)
  - Lipase increased [Recovered/Resolved]
  - Amylase increased [Recovered/Resolved]
  - Transaminases increased [Recovering/Resolving]

NARRATIVE: CASE EVENT DATE: 20241115
